FAERS Safety Report 18854993 (Version 2)
Quarter: 2021Q1

REPORT INFORMATION
  Report Type: Spontaneous
  Country: US (occurrence: US)
  Receive Date: 20210206
  Receipt Date: 20210216
  Transmission Date: 20210420
  Serious: No
  Sender: FDA-Public Use
  Company Number: US-009507513-2101USA012160

PATIENT
  Age: 22 Year
  Sex: Female
  Weight: 50.35 kg

DRUGS (1)
  1. NEXPLANON [Suspect]
     Active Substance: ETONOGESTREL
     Dosage: IMPLANT (IN LEFT ARM)
     Route: 059
     Dates: start: 20170824, end: 20210208

REACTIONS (5)
  - Complication associated with device [Recovered/Resolved]
  - Incorrect product administration duration [Unknown]
  - Complication of device removal [Recovered/Resolved]
  - No adverse event [Unknown]
  - Complication associated with device [Recovered/Resolved]

NARRATIVE: CASE EVENT DATE: 2017
